FAERS Safety Report 8652367 (Version 4)
Quarter: 2012Q4

REPORT INFORMATION
  Report Type: Report from Study
  Country: US (occurrence: US)
  Receive Date: 20120706
  Receipt Date: 20121108
  Transmission Date: 20130627
  Serious: Yes (Hospitalization, Other)
  Sender: FDA-Public Use
  Company Number: US-ROCHE-1083391

PATIENT
  Age: 69 Year
  Sex: Female

DRUGS (5)
  1. PEG-INTERFERON ALFA 2A [Suspect]
     Indication: CHRONIC HEPATITIS C
     Route: 065
     Dates: start: 20120430, end: 20121008
  2. TELAPREVIR [Suspect]
     Indication: CHRONIC HEPATITIS C
     Route: 065
     Dates: start: 20120430, end: 20120723
  3. RIBAVIRIN [Suspect]
     Indication: CHRONIC HEPATITIS C
     Route: 065
     Dates: start: 20120430
  4. RIBAVIRIN [Suspect]
     Route: 065
     Dates: start: 201206
  5. RIBAVIRIN [Suspect]
     Route: 065
     Dates: start: 201207

REACTIONS (7)
  - Anaemia [Recovered/Resolved]
  - Dehydration [Unknown]
  - Pneumonia [Unknown]
  - Malnutrition [Unknown]
  - Alopecia [Unknown]
  - White blood cell count decreased [Unknown]
  - Headache [Unknown]
